FAERS Safety Report 9491381 (Version 4)
Quarter: 2013Q4

REPORT INFORMATION
  Report Type: Spontaneous
  Country: US (occurrence: US)
  Receive Date: 20130830
  Receipt Date: 20131008
  Transmission Date: 20140711
  Serious: No
  Sender: FDA-Public Use
  Company Number: US-009507513-1308USA015025

PATIENT
  Age: 91 Year
  Sex: Female
  Weight: 58.96 kg

DRUGS (3)
  1. CLARITIN LIQUIGELS [Suspect]
     Indication: HYPERSENSITIVITY
     Dosage: 10 MG, QD
     Route: 048
     Dates: start: 20130805, end: 20130809
  2. CLARITIN LIQUIGELS [Suspect]
     Indication: RHINORRHOEA
     Dosage: 10 MG, QD
     Route: 048
     Dates: start: 20130805, end: 20130809
  3. CLARITIN LIQUIGELS [Suspect]
     Indication: SNEEZING

REACTIONS (2)
  - Condition aggravated [Unknown]
  - Drug effect decreased [Unknown]
